FAERS Safety Report 5486588-0 (Version None)
Quarter: 2007Q3

REPORT INFORMATION
  Report Type: 
  Country: None (occurrence: None)
  Receive Date: 20070920
  Receipt Date: 20070307
  Transmission Date: 20080115
  Serious: Yes (Hospitalization)
  Sender: FDA-Public Use
  Company Number: 07P-163-0361320-00

PATIENT
  Age: 72 Year
  Sex: Male

DRUGS (2)
  1. DEPAKOTE ER [Suspect]
     Indication: CONVULSION
     Dosage: 500 MG, 2 IN 1 D, PER ORAL
     Route: 048
     Dates: start: 20040101
  2. LEVETIRACETAM [Concomitant]

REACTIONS (2)
  - AMMONIA INCREASED [None]
  - MENTAL STATUS CHANGES [None]
